FAERS Safety Report 16999841 (Version 1)
Quarter: 2019Q4

REPORT INFORMATION
  Report Type: Spontaneous
  Country: GB (occurrence: GB)
  Receive Date: 20191105
  Receipt Date: 20191105
  Transmission Date: 20200122
  Serious: Yes (Other)
  Sender: FDA-Public Use
  Company Number: GB-TAKEDA-2019TUS061640

PATIENT
  Age: 37 Year
  Sex: Male
  Weight: 136 kg

DRUGS (1)
  1. VORTIOXETINE. [Suspect]
     Active Substance: VORTIOXETINE
     Indication: BIPOLAR DISORDER
     Dosage: 15 MILLIGRAM
     Route: 048
     Dates: start: 20170101, end: 20180808

REACTIONS (8)
  - Withdrawal syndrome [Unknown]
  - Photophobia [Recovered/Resolved]
  - Pyrexia [Recovered/Resolved]
  - Vomiting [Recovered/Resolved]
  - Bone pain [Recovered/Resolved]
  - Product use in unapproved indication [Unknown]
  - Headache [Recovered/Resolved]
  - Hyperacusis [Recovered/Resolved]

NARRATIVE: CASE EVENT DATE: 20180801
